FAERS Safety Report 5850683-4 (Version None)
Quarter: 2008Q3

REPORT INFORMATION
  Report Type: 
  Country: None (occurrence: None)
  Receive Date: 20080820
  Receipt Date: 20080820
  Transmission Date: 20090109
  Serious: Yes (Death, Hospitalization, Other)
  Sender: FDA-Public Use
  Company Number: None

PATIENT
  Age: 84 Year
  Sex: Female

DRUGS (1)
  1. HEPARIN [Suspect]

REACTIONS (5)
  - INFECTION [None]
  - POST PROCEDURAL COMPLICATION [None]
  - RENAL HAEMORRHAGE [None]
  - THERAPEUTIC PRODUCT CONTAMINATION [None]
  - URINARY BLADDER HAEMORRHAGE [None]
